FAERS Safety Report 11810493 (Version 1)
Quarter: 2015Q4

REPORT INFORMATION
  Report Type: Spontaneous
  Country: US (occurrence: None)
  Receive Date: 20151207
  Receipt Date: 20151207
  Transmission Date: 20160305
  Serious: Yes (Life-Threatening, Disabling)
  Sender: FDA-Public Use
  Company Number: None

PATIENT
  Age: 70 Year
  Sex: Male
  Weight: 78.47 kg

DRUGS (17)
  1. OXYMORPHONE ER [Suspect]
     Active Substance: OXYMORPHONE
     Indication: POST PROCEDURAL COMPLICATION
     Route: 048
     Dates: start: 20150201, end: 20151201
  2. VALIUM [Concomitant]
     Active Substance: DIAZEPAM
  3. ZOCCOR [Concomitant]
  4. OXYMORPHONE ER [Suspect]
     Active Substance: OXYMORPHONE
     Indication: BACK PAIN
     Route: 048
     Dates: start: 20150201, end: 20151201
  5. OXYCODONE [Concomitant]
     Active Substance: OXYCODONE
  6. OXYMORPHONE ER [Suspect]
     Active Substance: OXYMORPHONE
     Indication: HERNIA REPAIR
     Route: 048
     Dates: start: 20150201, end: 20151201
  7. LISINOPRIL. [Concomitant]
     Active Substance: LISINOPRIL
  8. CIALIS [Concomitant]
     Active Substance: TADALAFIL
  9. TRICOR [Concomitant]
     Active Substance: FENOFIBRATE
  10. ADDERALL [Concomitant]
     Active Substance: AMPHETAMINE ASPARTATE\AMPHETAMINE SULFATE\DEXTROAMPHETAMINE SACCHARATE\DEXTROAMPHETAMINE SULFATE
  11. DULOXETINE. [Concomitant]
     Active Substance: DULOXETINE
  12. ATENALOL [Concomitant]
  13. OXYMORPHONE ER [Suspect]
     Active Substance: OXYMORPHONE
     Indication: ARTHRITIS
     Route: 048
     Dates: start: 20150201, end: 20151201
  14. DILTRIAZEM ER [Concomitant]
  15. GABAPENTINPANTOPRAZOLE [Concomitant]
  16. OXYCONTIN [Concomitant]
     Active Substance: OXYCODONE HYDROCHLORIDE
  17. TESTOSTERONE. [Concomitant]
     Active Substance: TESTOSTERONE

REACTIONS (10)
  - Angina pectoris [None]
  - Apnoea [None]
  - Pain [None]
  - Asthenia [None]
  - Depression [None]
  - Muscle spasms [None]
  - Somnolence [None]
  - Dyspnoea [None]
  - Arrhythmia [None]
  - Hiccups [None]
